FAERS Safety Report 12367801 (Version 3)
Quarter: 2016Q2

REPORT INFORMATION
  Report Type: Spontaneous
  Country: BR (occurrence: BR)
  Receive Date: 20160513
  Receipt Date: 20160630
  Transmission Date: 20160815
  Serious: Yes (Hospitalization, Other)
  Sender: FDA-Public Use
  Company Number: BR-JNJFOC-20160509162

PATIENT
  Age: 63 Year
  Sex: Male

DRUGS (6)
  1. STELARA [Concomitant]
     Active Substance: USTEKINUMAB
     Indication: PSORIASIS
     Route: 058
     Dates: start: 20131226
  2. QUETIAPINE. [Concomitant]
     Active Substance: QUETIAPINE
     Route: 065
  3. HALDOL [Suspect]
     Active Substance: HALOPERIDOL
     Indication: SCHIZOPHRENIA
     Route: 065
  4. PROMAZINE [Concomitant]
     Active Substance: PROMAZINE
     Route: 065
  5. PROLOPA [Concomitant]
     Active Substance: BENSERAZIDE\LEVODOPA
     Route: 065
  6. RIVOTRIL [Concomitant]
     Active Substance: CLONAZEPAM
     Indication: PRODUCT USED FOR UNKNOWN INDICATION
     Route: 065

REACTIONS (5)
  - Tremor [Unknown]
  - Mental disorder [Recovered/Resolved]
  - Urinary tract infection [Unknown]
  - Catatonia [Unknown]
  - Tachycardia [Unknown]

NARRATIVE: CASE EVENT DATE: 20160425
